FAERS Safety Report 7359741-9 (Version None)
Quarter: 2011Q1

REPORT INFORMATION
  Report Type: 
  Country: None (occurrence: None)
  Receive Date: 20110317
  Receipt Date: 20110315
  Transmission Date: 20110831
  Serious: Yes (Death)
  Sender: FDA-Public Use
  Company Number: US-PFIZER INC-2011012235

PATIENT
  Sex: Male

DRUGS (7)
  1. FENTANYL [Suspect]
     Dosage: UNK
  2. GEODON [Suspect]
     Indication: DISORIENTATION
  3. ATIVAN [Suspect]
     Indication: ANXIETY
     Dosage: 2 MG, EVERY 4 HRS
     Dates: start: 20101004
  4. ATIVAN [Suspect]
     Indication: AGITATION
     Dosage: 2 MG 1H AND 45 MIN APART
     Dates: start: 20101006
  5. DILAUDID [Suspect]
     Indication: PAIN
     Dosage: UNK
  6. OXYCODONE HCL [Suspect]
     Indication: PAIN
     Dosage: UNK
  7. GEODON [Suspect]
     Indication: DELIRIUM
     Dosage: 40 MG, UNK
     Route: 030

REACTIONS (3)
  - CARDIO-RESPIRATORY ARREST [None]
  - ARRHYTHMIA [None]
  - HYPOXIC-ISCHAEMIC ENCEPHALOPATHY [None]
